FAERS Safety Report 20858789 (Version 1)
Quarter: 2022Q2

REPORT INFORMATION
  Report Type: Spontaneous
  Country: US (occurrence: US)
  Receive Date: 20220522
  Receipt Date: 20220522
  Transmission Date: 20220721
  Serious: No
  Sender: FDA-Public Use
  Company Number: US-009507513-2205USA005039

PATIENT
  Sex: Male

DRUGS (1)
  1. KEYTRUDA [Suspect]
     Active Substance: PEMBROLIZUMAB
     Indication: Malignant melanoma
     Dosage: 200 MG Q 3 WEEKS
     Route: 042
     Dates: start: 2021

REACTIONS (2)
  - Fatigue [Unknown]
  - Decreased activity [Unknown]

NARRATIVE: CASE EVENT DATE: 20210101
